FAERS Safety Report 15766263 (Version 2)
Quarter: 2019Q1

REPORT INFORMATION
  Report Type: Spontaneous
  Country: JP (occurrence: JP)
  Receive Date: 20181227
  Receipt Date: 20190104
  Transmission Date: 20190417
  Serious: Yes (Other)
  Sender: FDA-Public Use
  Company Number: JP-SAKK-2018SA391156AA

PATIENT
  Age: 30 Year
  Sex: Female

DRUGS (2)
  1. XYZAL [Concomitant]
     Active Substance: LEVOCETIRIZINE DIHYDROCHLORIDE
     Indication: DERMATITIS ATOPIC
     Dosage: UNK UNK, QD
     Route: 048
     Dates: start: 20180512
  2. DUPIXENT [Suspect]
     Active Substance: DUPILUMAB
     Indication: DERMATITIS ATOPIC
     Dosage: 300 MG, QOW
     Route: 058
     Dates: start: 20180616

REACTIONS (2)
  - Ocular hyperaemia [Recovering/Resolving]
  - Scleritis [Recovering/Resolving]

NARRATIVE: CASE EVENT DATE: 20180906
